FAERS Safety Report 11254020 (Version 1)
Quarter: 2015Q3

REPORT INFORMATION
  Report Type: Spontaneous
  Country: US (occurrence: None)
  Receive Date: 20150708
  Receipt Date: 20150708
  Transmission Date: 20151125
  Serious: Yes (Other)
  Sender: FDA-Public Use
  Company Number: None

PATIENT
  Age: 65 Year
  Sex: Female
  Weight: 64.41 kg

DRUGS (2)
  1. IBANDRONATE SODIUM 150 MG MYLAN [Suspect]
     Active Substance: IBANDRONATE SODIUM
     Indication: OSTEOPOROSIS POSTMENOPAUSAL
     Dosage: 1 MONTHLY;1 PILL OF 3 RETURNED TO PHARMACY; BY MOUTH W/NO FOOD 1 HR. BEFORE EATING W/WATER; 3 DAYS OF SYMPTOMS
     Route: 048
     Dates: start: 20150503
  2. IBANDRONATE SODIUM 150 MG MYLAN [Suspect]
     Active Substance: IBANDRONATE SODIUM
     Dosage: 1 MONTHLY;1 PILL OF 3 RETURNED TO PHARMACY; BY MOUTH W/NO FOOD 1 HR. BEFORE EATING W/WATER; 3 DAYS OF SYMPTOMS
     Route: 048
     Dates: start: 20150503

REACTIONS (10)
  - Gastrointestinal pain [None]
  - Dehydration [None]
  - Pain [None]
  - Influenza like illness [None]
  - Arthralgia [None]
  - Abdominal distension [None]
  - Vomiting [None]
  - Pyrexia [None]
  - Diarrhoea [None]
  - Musculoskeletal stiffness [None]

NARRATIVE: CASE EVENT DATE: 20150503
